FAERS Safety Report 9580197 (Version 2)
Quarter: 2013Q4

REPORT INFORMATION
  Report Type: Report from Study
  Country: DE (occurrence: DE)
  Receive Date: 20131002
  Receipt Date: 20131019
  Transmission Date: 20140711
  Serious: Yes (Hospitalization)
  Sender: FDA-Public Use
  Company Number: DE-AMGEN-DEUCT2013068244

PATIENT
  Age: 74 Year
  Sex: Female

DRUGS (9)
  1. DENOSUMAB [Suspect]
     Indication: OSTEOPOROSIS POSTMENOPAUSAL
     Dosage: 1 ML, Q6MO
     Route: 058
     Dates: start: 20071205
  2. FALITHROM [Concomitant]
     Dosage: 1/2 TABLET, QD
     Route: 048
     Dates: start: 2002
  3. FALICARD [Concomitant]
     Dosage: 120 MG, QD
     Route: 048
     Dates: start: 2002
  4. TILIDIN [Concomitant]
     Dosage: 50 MG, BID
     Route: 048
     Dates: start: 20130116
  5. IBUPROFEN [Concomitant]
     Dosage: 100 MG, QD
     Route: 048
     Dates: start: 20130116
  6. CALCIUM [Concomitant]
     Dosage: 1000 MG, QD
     Route: 048
     Dates: start: 200412
  7. VITAMIN D                          /00107901/ [Concomitant]
     Dosage: 400 IU, QD
     Route: 048
     Dates: start: 201003
  8. SIMVASTATIN [Concomitant]
     Dosage: 20 MG, QD
     Route: 048
     Dates: start: 20060630
  9. TRAVATAN [Concomitant]
     Dosage: UNK UNK, QD
     Route: 048
     Dates: start: 2001

REACTIONS (1)
  - Atypical pneumonia [Recovered/Resolved]
